APPROVED DRUG PRODUCT: IOPAMIDOL-370
Active Ingredient: IOPAMIDOL
Strength: 76%
Dosage Form/Route: INJECTABLE;INJECTION
Application: A074679 | Product #003
Applicant: FRESENIUS KABI USA LLC
Approved: Apr 2, 1997 | RLD: No | RS: No | Type: DISCN